FAERS Safety Report 15459305 (Version 4)
Quarter: 2020Q1

REPORT INFORMATION
  Report Type: Report from Study
  Country: KR (occurrence: KR)
  Receive Date: 20181003
  Receipt Date: 20200220
  Transmission Date: 20200409
  Serious: Yes (Hospitalization)
  Sender: FDA-Public Use
  Company Number: KR-CELLTRION INC.-2018KR022725

PATIENT

DRUGS (15)
  1. SOLONDO [Concomitant]
     Active Substance: PREDNISOLONE
     Indication: CROHN^S DISEASE
     Dosage: 40 MG, SINGLE
     Route: 048
     Dates: start: 20180821
  2. FOLATE [Concomitant]
     Active Substance: FOLATE SODIUM
     Indication: CROHN^S DISEASE
     Dosage: 1 TABLET, SINGLE
     Route: 048
     Dates: start: 20180821
  3. REMSIMA [Suspect]
     Active Substance: INFLIXIMAB
     Indication: CROHN^S DISEASE
     Dosage: 300 MG
     Route: 042
     Dates: start: 20180910, end: 20180910
  4. CURAN [Concomitant]
     Active Substance: RANITIDINE HYDROCHLORIDE
     Indication: CROHN^S DISEASE
     Dosage: 150 MG, BID
     Route: 048
     Dates: start: 20180821
  5. APLACE [Concomitant]
     Active Substance: TROXIPIDE
     Indication: CROHN^S DISEASE
     Dosage: 100 MG (FREQUENCY: 1)
     Route: 048
     Dates: start: 20180818
  6. BREXIN                             /00020001/ [Concomitant]
     Active Substance: ACETAMINOPHEN
     Indication: JUVENILE IDIOPATHIC ARTHRITIS
     Dosage: 1 DF, SINGLE
     Route: 048
     Dates: start: 20161026, end: 20180918
  7. REMSIMA [Suspect]
     Active Substance: INFLIXIMAB
     Dosage: 263 MG
     Route: 042
     Dates: start: 20180928, end: 20180928
  8. REMSIMA [Suspect]
     Active Substance: INFLIXIMAB
     Dosage: 325 MG
     Route: 042
     Dates: start: 20190411, end: 20190411
  9. REMSIMA [Suspect]
     Active Substance: INFLIXIMAB
     Dosage: 315 MG
     Route: 042
     Dates: start: 20190214, end: 20190214
  10. REMSIMA [Suspect]
     Active Substance: INFLIXIMAB
     Dosage: 320 MG
     Route: 042
     Dates: start: 20190530, end: 20190530
  11. PENTASA [Concomitant]
     Active Substance: MESALAMINE
     Indication: CROHN^S DISEASE
     Dosage: 500 MG, BID
     Route: 048
     Dates: start: 20180821
  12. REMSIMA [Suspect]
     Active Substance: INFLIXIMAB
     Dosage: 310 MG
     Route: 042
     Dates: start: 20181220, end: 20181220
  13. APLACE [Concomitant]
     Active Substance: TROXIPIDE
     Dosage: 100 MG, SINGLE
     Route: 048
     Dates: start: 20180821
  14. METHOTREXATE. [Concomitant]
     Active Substance: METHOTREXATE
     Indication: JUVENILE IDIOPATHIC ARTHRITIS
     Dosage: 5 TABLET, 1/WEEK
     Route: 048
     Dates: start: 20161026
  15. REMSIMA [Suspect]
     Active Substance: INFLIXIMAB
     Dosage: 290 MG
     Route: 042
     Dates: start: 20181022, end: 20181022

REACTIONS (3)
  - Hypophagia [Recovered/Resolved]
  - Abdominal pain [Recovered/Resolved]
  - Incorrect dose administered [Unknown]

NARRATIVE: CASE EVENT DATE: 20190612
